FAERS Safety Report 10555219 (Version 7)
Quarter: 2015Q4

REPORT INFORMATION
  Report Type: Report from Study
  Country: US (occurrence: US)
  Receive Date: 20141030
  Receipt Date: 20151112
  Transmission Date: 20160304
  Serious: Yes (Hospitalization, Other)
  Sender: FDA-Public Use
  Company Number: US-SA-2014SA060691

PATIENT
  Age: 55 Year
  Sex: Female

DRUGS (2)
  1. AUBAGIO [Suspect]
     Active Substance: TERIFLUNOMIDE
     Indication: MULTIPLE SCLEROSIS
     Route: 048
     Dates: start: 20140502
  2. AMPYRA [Concomitant]
     Active Substance: DALFAMPRIDINE

REACTIONS (17)
  - Myocardial infarction [Recovered/Resolved]
  - Blood potassium decreased [Unknown]
  - Drug administration error [Unknown]
  - Urinary tract infection [Recovered/Resolved]
  - Night sweats [Recovered/Resolved]
  - Hypoaesthesia [Unknown]
  - Cholelithiasis [Recovered/Resolved]
  - Alopecia [Unknown]
  - Blood pressure abnormal [Recovered/Resolved]
  - Hypokinesia [Recovering/Resolving]
  - Dyskinesia [Unknown]
  - Blood magnesium decreased [Unknown]
  - Pain in extremity [Unknown]
  - Nephrolithiasis [Recovered/Resolved]
  - Dyspepsia [Unknown]
  - Flushing [Unknown]
  - Hot flush [Unknown]

NARRATIVE: CASE EVENT DATE: 2015
